FAERS Safety Report 7514126-7 (Version None)
Quarter: 2011Q2

REPORT INFORMATION
  Report Type: 
  Country: None (occurrence: None)
  Receive Date: 20110531
  Receipt Date: 20100624
  Transmission Date: 20111010
  Serious: No
  Sender: FDA-Public Use
  Company Number: US-BAYER-201026269NA

PATIENT
  Sex: Female

DRUGS (2)
  1. ANTIHISTAMINES [Concomitant]
     Indication: RASH
  2. AVELOX [Suspect]

REACTIONS (1)
  - RASH [None]
